FAERS Safety Report 6948143-2 (Version None)
Quarter: 2010Q3

REPORT INFORMATION
  Report Type: 
  Country: None (occurrence: None)
  Receive Date: 20100828
  Receipt Date: 20091020
  Transmission Date: 20110219
  Serious: No
  Sender: FDA-Public Use
  Company Number: US-ABBOTT-09P-163-0604357-00

PATIENT
  Sex: Male
  Weight: 102.15 kg

DRUGS (18)
  1. NIASPAN [Suspect]
     Indication: BLOOD CHOLESTEROL INCREASED
  2. NIASPAN [Suspect]
  3. NIASPAN [Suspect]
     Dates: start: 20091019
  4. LIPITOR [Concomitant]
     Indication: PRODUCT USED FOR UNKNOWN INDICATION
  5. CELLCEPT [Concomitant]
     Indication: PRODUCT USED FOR UNKNOWN INDICATION
  6. GENVAV [Concomitant]
     Indication: RENAL TRANSPLANT
  7. NEXIUM [Concomitant]
     Indication: PRODUCT USED FOR UNKNOWN INDICATION
  8. FLOMAX [Concomitant]
     Indication: PRODUCT USED FOR UNKNOWN INDICATION
  9. MVT [Concomitant]
     Indication: PRODUCT USED FOR UNKNOWN INDICATION
  10. ASPIRIN [Concomitant]
     Indication: PRODUCT USED FOR UNKNOWN INDICATION
  11. MAGNESIUM OXIDE [Concomitant]
     Indication: PRODUCT USED FOR UNKNOWN INDICATION
  12. METOPROLOL [Concomitant]
     Indication: PRODUCT USED FOR UNKNOWN INDICATION
  13. DOXAZOSIN MESYLATE [Concomitant]
     Indication: PRODUCT USED FOR UNKNOWN INDICATION
  14. LASIX [Concomitant]
     Indication: PRODUCT USED FOR UNKNOWN INDICATION
  15. CALCITRIOL [Concomitant]
     Indication: PRODUCT USED FOR UNKNOWN INDICATION
  16. COLACE [Concomitant]
     Indication: PRODUCT USED FOR UNKNOWN INDICATION
  17. ENALAPRIL [Concomitant]
     Indication: PRODUCT USED FOR UNKNOWN INDICATION
  18. AVOLOX [Concomitant]
     Indication: FACIAL OPERATION

REACTIONS (1)
  - FLUSHING [None]
